FAERS Safety Report 5288791-1 (Version None)
Quarter: 2007Q2

REPORT INFORMATION
  Report Type: 
  Country: None (occurrence: None)
  Receive Date: 20070405
  Receipt Date: 20070322
  Transmission Date: 20071010
  Serious: No
  Sender: FDA-Public Use
  Company Number: ZA-ELI_LILLY_AND_COMPANY-ZA200703005321

PATIENT
  Age: 71 Year
  Sex: Male

DRUGS (8)
  1. CYMBALTA [Suspect]
     Indication: DIABETIC NEPHROPATHY
     Dosage: 30 MG, DAILY (1/D)
     Route: 048
     Dates: start: 20070113
  2. INDAPAMIDE [Concomitant]
     Indication: HYPERTENSION
     Dosage: 2.5 MG, DAILY (1/D)
     Route: 048
  3. PERINDOPRIL ERBUMINE [Concomitant]
     Indication: HYPERTENSION
     Dosage: 4 MG, 2/D AND ON AS NEDDED BASIS
     Route: 048
  4. VESICARE [Concomitant]
     Indication: URINE OUTPUT DECREASED
     Dosage: 5 MG, DAILY (1/D)
     Route: 048
  5. ECOTRIN [Concomitant]
     Indication: PROPHYLAXIS
     Dosage: 81 MG, DAILY (1/D)
     Route: 048
  6. GLUCOPHAGE [Concomitant]
     Indication: DIABETES MELLITUS NON-INSULIN-DEPENDENT
     Dosage: 1 D/F, 2/D
     Route: 048
  7. SPECTRAPAIN [Concomitant]
     Indication: PAIN
     Dosage: 1 D/F, AS NEEDED
     Route: 048
  8. SLOW-MAG [Concomitant]
     Indication: SUPPLEMENTATION THERAPY
     Dosage: UNK, UNK
     Route: 048

REACTIONS (1)
  - URINE COLOUR ABNORMAL [None]
